FAERS Safety Report 23084717 (Version 1)
Quarter: 2023Q4

REPORT INFORMATION
  Report Type: Spontaneous
  Country: US (occurrence: None)
  Receive Date: 20231019
  Receipt Date: 20231019
  Transmission Date: 20240110
  Serious: Yes (Hospitalization)
  Sender: FDA-Public Use
  Company Number: None

PATIENT
  Sex: Female

DRUGS (1)
  1. BENLYSTA [Suspect]
     Active Substance: BELIMUMAB
     Indication: Systemic lupus erythematosus
     Dosage: FREQUENCY : AS DIRECTED;?
     Route: 042
     Dates: start: 20230425

REACTIONS (4)
  - Oxygen saturation decreased [None]
  - Pericardial effusion [None]
  - Chronic cutaneous lupus erythematosus [None]
  - Therapeutic product effect decreased [None]
